FAERS Safety Report 18904054 (Version 1)
Quarter: 2021Q1

REPORT INFORMATION
  Report Type: Spontaneous
  Country: US (occurrence: US)
  Receive Date: 20210217
  Receipt Date: 20210217
  Transmission Date: 20210420
  Serious: Yes (Other)
  Sender: FDA-Public Use
  Company Number: None

PATIENT
  Age: 35 Year
  Sex: Female
  Weight: 96.75 kg

DRUGS (1)
  1. BUPRENORPHINE?NALOXONE [Suspect]
     Active Substance: BUPRENORPHINE HYDROCHLORIDE\NALOXONE HYDROCHLORIDE
     Indication: DRUG USE DISORDER
     Route: 060
     Dates: start: 20201019

REACTIONS (2)
  - Application site vesicles [None]
  - Tongue blistering [None]

NARRATIVE: CASE EVENT DATE: 20210111
